FAERS Safety Report 5493337-9 (Version None)
Quarter: 2007Q4

REPORT INFORMATION
  Report Type: 
  Country: None (occurrence: None)
  Receive Date: 20071023
  Receipt Date: 20071015
  Transmission Date: 20080405
  Serious: Yes (Hospitalization, Other)
  Sender: FDA-Public Use
  Company Number: US-BAYER-200713266BCC

PATIENT
  Age: 71 Year
  Sex: Female
  Weight: 71 kg

DRUGS (12)
  1. ASPIRIN [Suspect]
     Indication: DRUG USE FOR UNKNOWN INDICATION
  2. TEMODAR [Suspect]
     Indication: GLIOBLASTOMA MULTIFORME
     Dosage: TOTAL DAILY DOSE: 75 MG/M2
     Route: 048
     Dates: start: 20070806, end: 20070917
  3. DECADRON [Suspect]
  4. DIGOXIN [Suspect]
  5. DUONEB [Suspect]
  6. LASIX [Suspect]
  7. LEVAQUIN [Suspect]
  8. MUCOMYST [Suspect]
  9. COLACE [Concomitant]
  10. LIPITOR [Concomitant]
  11. LOVENOX [Concomitant]
  12. METOPROLOL [Concomitant]

REACTIONS (6)
  - FATIGUE [None]
  - HALLUCINATION [None]
  - METABOLIC ENCEPHALOPATHY [None]
  - ORAL INTAKE REDUCED [None]
  - SOMNOLENCE [None]
  - VISUAL DISTURBANCE [None]
